FAERS Safety Report 24702559 (Version 2)
Quarter: 2024Q4

REPORT INFORMATION
  Report Type: Spontaneous
  Country: PL (occurrence: PL)
  Receive Date: 20241205
  Receipt Date: 20241209
  Transmission Date: 20250114
  Serious: Yes (Hospitalization, Disabling)
  Sender: JOHNSON AND JOHNSON
  Company Number: PL-JNJFOC-20241160999

PATIENT
  Sex: Male

DRUGS (1)
  1. CARVYKTI [Suspect]
     Active Substance: CILTACABTAGENE AUTOLEUCEL
     Indication: Plasma cell myeloma
     Route: 065
     Dates: start: 20230131

REACTIONS (5)
  - Parkinsonism [Not Recovered/Not Resolved]
  - Cytokine release syndrome [Recovering/Resolving]
  - Immune effector cell-associated neurotoxicity syndrome [Recovering/Resolving]
  - Urinary tract infection [Unknown]
  - Tooth loss [Unknown]

NARRATIVE: CASE EVENT DATE: 20230101
